FAERS Safety Report 8843041 (Version 3)
Quarter: 2012Q4

REPORT INFORMATION
  Report Type: Report from Study
  Country: US (occurrence: US)
  Receive Date: 20121016
  Receipt Date: 20121106
  Transmission Date: 20130627
  Serious: Yes (Death, Hospitalization)
  Sender: FDA-Public Use
  Company Number: US-VIIV HEALTHCARE LIMITED-B0771083A

PATIENT
  Age: 43 Year
  Sex: Male
  Weight: 73.9 kg

DRUGS (12)
  1. MARAVIROC [Suspect]
     Indication: HIV INFECTION
     Dosage: 600MG per day
     Route: 048
     Dates: start: 20100513
  2. PROMETHAZINE [Concomitant]
     Dates: start: 20101201, end: 20110921
  3. ECONAZOLE [Concomitant]
     Dates: start: 20100512, end: 201012
  4. PHENYTOIN [Concomitant]
     Dates: start: 20100824, end: 20110921
  5. MIRTAZAPINE [Concomitant]
     Dates: start: 20090923, end: 20110921
  6. OXCARBAZEPINE [Concomitant]
     Dates: start: 20090923
  7. PHENYTEK [Concomitant]
     Dates: start: 20090923
  8. BACTRIM DS [Concomitant]
     Dates: start: 20061126
  9. LAMICTAL [Concomitant]
     Dates: start: 20061128
  10. TRUVADA [Concomitant]
     Dosage: 1TAB per day
     Dates: start: 20061126
  11. DARUNAVIR [Concomitant]
     Dosage: 1200MG per day
     Dates: start: 20100513
  12. RITONAVIR [Concomitant]
     Dosage: 200MG per day
     Dates: start: 20100513

REACTIONS (6)
  - Convulsion [Recovered/Resolved]
  - Pneumonia aspiration [Recovered/Resolved]
  - Septic shock [Fatal]
  - Pneumonia [Fatal]
  - Convulsion [Fatal]
  - Myocardial infarction [Fatal]
